FAERS Safety Report 13251286 (Version 2)
Quarter: 2017Q2

REPORT INFORMATION
  Report Type: Spontaneous
  Country: DK (occurrence: DK)
  Receive Date: 20170220
  Receipt Date: 20170421
  Transmission Date: 20170830
  Serious: Yes (Other)
  Sender: FDA-Public Use
  Company Number: DK-SUN PHARMACEUTICAL INDUSTRIES LTD-2017R1-133988

PATIENT
  Age: 74 Year
  Sex: Female

DRUGS (6)
  1. PREDNISONE. [Suspect]
     Active Substance: PREDNISONE
     Indication: NON-HODGKIN^S LYMPHOMA STAGE III
     Dosage: UNK
     Route: 065
  2. ONCOVIN [Suspect]
     Active Substance: VINCRISTINE SULFATE
     Indication: NON-HODGKIN^S LYMPHOMA STAGE III
     Dosage: UNK
     Route: 065
  3. CYCLOPHOSPHAMIDE. [Suspect]
     Active Substance: CYCLOPHOSPHAMIDE
     Indication: NON-HODGKIN^S LYMPHOMA STAGE III
     Dosage: UNK
     Route: 065
  4. RITUXIMAB [Suspect]
     Active Substance: RITUXIMAB
     Indication: NON-HODGKIN^S LYMPHOMA STAGE III
     Dosage: UNK
     Route: 065
  5. DOXORUBICIN [Suspect]
     Active Substance: DOXORUBICIN
     Indication: NON-HODGKIN^S LYMPHOMA STAGE III
     Dosage: UNK
     Route: 065
  6. PREDNISOLONE. [Suspect]
     Active Substance: PREDNISOLONE
     Indication: NON-HODGKIN^S LYMPHOMA STAGE III
     Dosage: UNK
     Route: 065

REACTIONS (5)
  - Non-Hodgkin^s lymphoma recurrent [Recovered/Resolved]
  - Drug resistance [Unknown]
  - Toxicity to various agents [Recovering/Resolving]
  - Sepsis [Recovering/Resolving]
  - Weight decreased [Recovering/Resolving]
